FAERS Safety Report 17635506 (Version 2)
Quarter: 2020Q3

REPORT INFORMATION
  Report Type: Spontaneous
  Country: US (occurrence: US)
  Receive Date: 20200407
  Receipt Date: 20200716
  Transmission Date: 20201102
  Serious: Yes (Other)
  Sender: FDA-Public Use
  Company Number: US-DRREDDYS-USA/USA/20/0121624

PATIENT
  Age: 51 Year
  Sex: Male

DRUGS (1)
  1. ATORVASTATIN [Suspect]
     Active Substance: ATORVASTATIN
     Indication: HYPERCHOLESTEROLAEMIA

REACTIONS (2)
  - Chest pain [Recovered/Resolved]
  - Myopathy [Recovered/Resolved]
